FAERS Safety Report 8248941-1 (Version None)
Quarter: 2012Q2

REPORT INFORMATION
  Report Type: 
  Country: None (occurrence: None)
  Receive Date: 20120402
  Receipt Date: 20120319
  Transmission Date: 20120825
  Serious: Yes (Other)
  Sender: FDA-Public Use
  Company Number: UG-BRISTOL-MYERS SQUIBB COMPANY-16486656

PATIENT

DRUGS (3)
  1. COTRIM [Concomitant]
     Indication: PROPHYLAXIS
  2. EFAVIRENZ [Suspect]
     Indication: HIV INFECTION
     Route: 048
  3. COMBIVIR [Suspect]
     Indication: HIV INFECTION
     Dosage: 1 DF: 150MG LAMIVUDINE + 300 ZIDO

REACTIONS (1)
  - NEUROTOXICITY [None]
